FAERS Safety Report 24857158 (Version 1)
Quarter: 2025Q1

REPORT INFORMATION
  Report Type: Other
  Country: CA (occurrence: CA)
  Receive Date: 20250117
  Receipt Date: 20250117
  Transmission Date: 20250408
  Serious: Yes (Other)
  Sender: PFIZER
  Company Number: CA-PFIZER INC-202500009871

PATIENT

DRUGS (2)
  1. VORICONAZOLE [Interacting]
     Active Substance: VORICONAZOLE
     Indication: Antifungal prophylaxis
  2. VENETOCLAX [Interacting]
     Active Substance: VENETOCLAX
     Indication: Acute myeloid leukaemia

REACTIONS (6)
  - Contraindicated product administered [Unknown]
  - Drug interaction [Unknown]
  - Drug ineffective [Unknown]
  - Pneumonia fungal [Unknown]
  - Systemic mycosis [Unknown]
  - Off label use [Unknown]
